FAERS Safety Report 20951004 (Version 1)
Quarter: 2022Q2

REPORT INFORMATION
  Report Type: Report from Study
  Country: US (occurrence: US)
  Receive Date: 20220613
  Receipt Date: 20220613
  Transmission Date: 20220721
  Serious: Yes (Other)
  Sender: FDA-Public Use
  Company Number: US-ABBVIE-22K-163-4428625-00

PATIENT
  Sex: Female

DRUGS (1)
  1. RINVOQ [Suspect]
     Active Substance: UPADACITINIB
     Indication: Rheumatoid arthritis
     Route: 048
     Dates: end: 20220508

REACTIONS (4)
  - Post procedural infection [Recovered/Resolved with Sequelae]
  - Eye infection [Recovered/Resolved with Sequelae]
  - Infection susceptibility increased [Recovered/Resolved with Sequelae]
  - Oral herpes [Recovered/Resolved with Sequelae]
